FAERS Safety Report 23879171 (Version 1)
Quarter: 2024Q2

REPORT INFORMATION
  Report Type: Spontaneous
  Country: US (occurrence: US)
  Receive Date: 20240521
  Receipt Date: 20240521
  Transmission Date: 20240716
  Serious: No
  Sender: FDA-Public Use
  Company Number: US-DENDREON PHARMACEUTICAL LLC-2023DEN000309

PATIENT

DRUGS (6)
  1. PROVENGE [Suspect]
     Active Substance: SIPULEUCEL-T
     Indication: Prostate cancer metastatic
     Dosage: DOSE 1
     Route: 042
     Dates: start: 20231109, end: 20231109
  2. PROVENGE [Suspect]
     Active Substance: SIPULEUCEL-T
     Dosage: DOSE 2
     Route: 042
     Dates: start: 20231130, end: 20231130
  3. LEUPROLIDE ACETATE [Concomitant]
     Active Substance: ISOPROPYL ALCOHOL\LEUPROLIDE ACETATE
     Indication: Prostate cancer metastatic
     Dosage: UNK, UNKNOWN
     Route: 065
  4. DAROLUTAMIDE [Concomitant]
     Active Substance: DAROLUTAMIDE
     Indication: Prostate cancer metastatic
     Dosage: UNK, UNKNOWN
     Route: 065
  5. ZYTIGA [Concomitant]
     Active Substance: ABIRATERONE ACETATE
     Indication: Prostate cancer metastatic
     Dosage: UNK, UNKNOWN
     Route: 065
  6. PREDNISONE [Concomitant]
     Active Substance: PREDNISONE
     Indication: Product used for unknown indication
     Dosage: UNK, UNKNOWN
     Route: 065

REACTIONS (1)
  - Puncture site cellulitis [Not Recovered/Not Resolved]

NARRATIVE: CASE EVENT DATE: 20231211
